FAERS Safety Report 6377551-6 (Version None)
Quarter: 2009Q3

REPORT INFORMATION
  Report Type: 
  Country: None (occurrence: None)
  Receive Date: 20090923
  Receipt Date: 20090923
  Transmission Date: 20100115
  Serious: Yes (Hospitalization)
  Sender: FDA-Public Use
  Company Number: None

PATIENT
  Age: 75 Year
  Sex: Male
  Weight: 83.1 kg

DRUGS (1)
  1. HYDROMORPHONE 4MG [Suspect]
     Indication: PAIN
     Dosage: 4MG IV ONCE
     Route: 042

REACTIONS (3)
  - CONFUSIONAL STATE [None]
  - CREATININE RENAL CLEARANCE DECREASED [None]
  - MENTAL STATUS CHANGES [None]
